FAERS Safety Report 8916849 (Version 1)
Quarter: 2012Q4

REPORT INFORMATION
  Report Type: Report from Study
  Country: TH (occurrence: TH)
  Receive Date: 20121120
  Receipt Date: 20121120
  Transmission Date: 20130627
  Serious: Yes (Death, Hospitalization)
  Sender: FDA-Public Use
  Company Number: TH-ROCHE-1147542

PATIENT
  Age: 61 Year
  Sex: Male
  Weight: 70.9 kg

DRUGS (24)
  1. RITUXIMAB [Suspect]
     Indication: DIFFUSE LARGE B-CELL LYMPHOMA
     Dosage: last dose taken 500 ml, last dose concentration taken 1.35 mg/ml, last dose taken on 09/Oct/2012
     Route: 042
     Dates: start: 20120807
  2. CYCLOPHOSPHAMIDE [Suspect]
     Indication: DIFFUSE LARGE B-CELL LYMPHOMA
     Dosage: last dose taken 1357.5 mg, last dose taken on 09/Oct/2012
     Route: 042
     Dates: start: 20120807
  3. DOXORUBICIN [Suspect]
     Indication: DIFFUSE LARGE B-CELL LYMPHOMA
     Dosage: last dose taken 90 mg, last dose taken on 09/Oct/2012
     Route: 042
     Dates: start: 20120807
  4. VINCRISTINE [Suspect]
     Indication: DIFFUSE LARGE B-CELL LYMPHOMA
     Dosage: last dose taken 2 mg, last dose taken on 09/Oct/2012
     Route: 042
     Dates: start: 20120807
  5. PREDNISONE [Suspect]
     Indication: DIFFUSE LARGE B-CELL LYMPHOMA
     Dosage: last dose taken 100 mg, last dose taken on 13/Oct/2012
     Route: 048
     Dates: start: 20120807
  6. GLIPIZIDE [Concomitant]
     Indication: DIABETES MELLITUS
  7. HUMULIN [Concomitant]
     Indication: DIABETES MELLITUS
  8. FBC [Concomitant]
     Indication: ANAEMIA
     Route: 065
     Dates: start: 20120918
  9. HCTZ [Concomitant]
     Indication: HYPERTENSION
     Route: 065
     Dates: end: 20121009
  10. AMLODIPINE [Concomitant]
     Indication: HYPERTENSION
     Route: 065
     Dates: end: 20121009
  11. ENARIL [Concomitant]
     Indication: HYPERTENSION
     Route: 065
     Dates: end: 20121009
  12. PARACETAMOL [Concomitant]
     Route: 065
     Dates: start: 20120918, end: 20120918
  13. PARACETAMOL [Concomitant]
     Route: 065
     Dates: start: 20121009, end: 20121009
  14. BENADRYL [Concomitant]
     Route: 065
     Dates: start: 20120918, end: 20120918
  15. BENADRYL [Concomitant]
     Route: 065
     Dates: start: 20121009, end: 20121009
  16. ONSIA [Concomitant]
     Route: 065
     Dates: start: 20120918, end: 20120920
  17. ONSIA [Concomitant]
     Route: 065
     Dates: start: 20121009, end: 20121009
  18. DEXAMETHASONE [Concomitant]
     Route: 065
     Dates: start: 20120918, end: 20120918
  19. DEXAMETHASONE [Concomitant]
     Route: 065
     Dates: start: 20121009, end: 20121009
  20. MIRACID [Concomitant]
     Route: 065
     Dates: start: 20120918, end: 20120924
  21. MIRACID [Concomitant]
     Route: 065
     Dates: start: 20121009, end: 20121015
  22. MILK OF MAGNESIA [Concomitant]
     Route: 065
     Dates: start: 20120918, end: 20120922
  23. METFORMIN [Concomitant]
     Route: 065
     Dates: start: 20120918, end: 20121009
  24. MOM [Concomitant]
     Route: 065
     Dates: start: 20121009, end: 20121011

REACTIONS (2)
  - Cerebrovascular accident [Fatal]
  - Febrile neutropenia [Fatal]
